FAERS Safety Report 5200910-1 (Version None)
Quarter: 2007Q1

REPORT INFORMATION
  Report Type: 
  Country: None (occurrence: None)
  Receive Date: 20070108
  Receipt Date: 19970701
  Transmission Date: 20070707
  Serious: Yes (Other)
  Sender: FDA-Public Use
  Company Number: DE-BRISTOL-MYERS SQUIBB COMPANY-13627765

PATIENT
  Sex: Female

DRUGS (3)
  1. TAXOL [Suspect]
     Indication: BREAST CANCER METASTATIC
     Dates: start: 19960701, end: 19970515
  2. FLUOROURACIL [Concomitant]
     Indication: BREAST CANCER METASTATIC
     Dates: start: 19970401, end: 19970601
  3. FOLIC ACID [Concomitant]
     Indication: BREAST CANCER METASTATIC
     Dates: start: 19970401, end: 19970601

REACTIONS (5)
  - CARBOHYDRATE ANTIGEN 15-3 INCREASED [None]
  - CARCINOEMBRYONIC ANTIGEN INCREASED [None]
  - DECREASED APPETITE [None]
  - METASTASES TO LIVER [None]
  - THROMBOCYTOPENIA [None]
